FAERS Safety Report 24753818 (Version 1)
Quarter: 2024Q4

REPORT INFORMATION
  Report Type: Spontaneous
  Country: US (occurrence: None)
  Receive Date: 20241218
  Receipt Date: 20241218
  Transmission Date: 20250114
  Serious: Yes (Hospitalization)
  Sender: Public
  Company Number: None

PATIENT
  Age: 92 Year
  Sex: Female
  Weight: 90 kg

DRUGS (4)
  1. HEPARIN [Suspect]
     Active Substance: HEPARIN SODIUM
     Indication: Atrial fibrillation
     Dosage: 14.5 MG/ML HOUR INTRAVENOUS DRIP
     Route: 041
     Dates: start: 20240724, end: 20240728
  2. amiodarone 360 mg/ D5W 200 mL [Concomitant]
     Dates: start: 20240724, end: 20240803
  3. norepinephrine 8 mg/NS 250 mL [Concomitant]
     Dates: start: 20240724, end: 20240801
  4. vasopressin 20 units/D5W 100 mL [Concomitant]
     Dates: start: 20240726, end: 20240726

REACTIONS (2)
  - Retroperitoneal haemorrhage [None]
  - Haemoglobin decreased [None]

NARRATIVE: CASE EVENT DATE: 20240729
